FAERS Safety Report 6469556-1 (Version None)
Quarter: 2009Q4

REPORT INFORMATION
  Report Type: 
  Country: None (occurrence: None)
  Receive Date: 20091130
  Receipt Date: 20091109
  Transmission Date: 20100525
  Serious: Yes (Congenital Anomaly)
  Sender: FDA-Public Use
  Company Number: 1000010233

PATIENT
  Sex: Male
  Weight: 2.7 kg

DRUGS (2)
  1. ESCITALOPRAM OXALATE [Suspect]
     Dosage: TRANSPLACENTAL
     Route: 064
  2. OPIPRAMOL [Suspect]
     Dosage: TRANSPLACENTAL
     Route: 064

REACTIONS (2)
  - HYDROCEPHALUS [None]
  - MATERNAL DRUGS AFFECTING FOETUS [None]
